FAERS Safety Report 7468150-3 (Version None)
Quarter: 2011Q2

REPORT INFORMATION
  Report Type: 
  Country: None (occurrence: None)
  Receive Date: 20110509
  Receipt Date: 20110406
  Transmission Date: 20111010
  Serious: Yes (Hospitalization)
  Sender: FDA-Public Use
  Company Number: US-ALEXION-A201100234

PATIENT

DRUGS (4)
  1. FOLIC ACID [Concomitant]
     Dosage: UNK
  2. METOPROLOL TARTRATE [Concomitant]
     Indication: BLOOD PRESSURE INCREASED
     Dosage: UNK
  3. IRON [Concomitant]
  4. SOLIRIS [Suspect]
     Indication: PAROXYSMAL NOCTURNAL HAEMOGLOBINURIA
     Dosage: 900 MG, Q2W
     Route: 042
     Dates: start: 20070907

REACTIONS (2)
  - INCISION SITE COMPLICATION [None]
  - UTERINE LEIOMYOMA [None]
